FAERS Safety Report 6590435-3 (Version None)
Quarter: 2010Q1

REPORT INFORMATION
  Report Type: 
  Country: None (occurrence: None)
  Receive Date: 20100219
  Receipt Date: 20100209
  Transmission Date: 20100710
  Serious: Yes (Death)
  Sender: FDA-Public Use
  Company Number: HK-ROCHE-684342

PATIENT
  Age: 73 Year
  Sex: Male

DRUGS (3)
  1. TAMIFLU [Suspect]
     Indication: H1N1 INFLUENZA
     Route: 065
     Dates: start: 20100105
  2. RELENZA [Suspect]
     Indication: H1N1 INFLUENZA
     Route: 065
     Dates: start: 20100105
  3. ANTIBIOTIC NOS [Concomitant]
     Indication: H1N1 INFLUENZA
     Dosage: DRUG REPORTED: ANTIBIOTICS
     Dates: start: 20100105

REACTIONS (2)
  - CEREBROVASCULAR ACCIDENT [None]
  - DRUG INEFFECTIVE [None]
